FAERS Safety Report 13072260 (Version 9)
Quarter: 2018Q2

REPORT INFORMATION
  Report Type: Spontaneous
  Country: US (occurrence: US)
  Receive Date: 20161229
  Receipt Date: 20180604
  Transmission Date: 20180711
  Serious: No
  Sender: FDA-Public Use
  Company Number: US-ACTELION-A-NJ2016-147382

PATIENT
  Age: 71 Year
  Sex: Male
  Weight: 73.47 kg

DRUGS (6)
  1. OPSUMIT [Suspect]
     Active Substance: MACITENTAN
     Indication: PULMONARY ARTERIAL HYPERTENSION
     Dosage: 10 MG, QD
     Route: 048
     Dates: start: 201603
  2. UPTRAVI [Concomitant]
     Active Substance: SELEXIPAG
     Indication: PULMONARY ARTERIAL HYPERTENSION
     Dosage: UNK
     Route: 048
  3. SILDENAFIL. [Concomitant]
     Active Substance: SILDENAFIL
     Dosage: 60 MG, TID
     Dates: start: 2016
  4. ASPIRIN. [Concomitant]
     Active Substance: ASPIRIN
     Dosage: 81 MG, QD
  5. POTASSIUM [Concomitant]
     Active Substance: POTASSIUM
     Dosage: 40 MEQ, QD
     Dates: start: 2015
  6. IRON [Concomitant]
     Active Substance: IRON
     Dosage: 65 MEQ, QD

REACTIONS (13)
  - Nasopharyngitis [Unknown]
  - Headache [Unknown]
  - Dizziness [Unknown]
  - Sinus congestion [Unknown]
  - Oral pain [Unknown]
  - Peripheral swelling [Unknown]
  - Hypertension [Unknown]
  - Pulmonary arterial hypertension [Unknown]
  - Dyspepsia [Unknown]
  - Presyncope [Unknown]
  - Secretion discharge [Unknown]
  - Dyspnoea [Unknown]
  - Condition aggravated [Unknown]

NARRATIVE: CASE EVENT DATE: 201804
